FAERS Safety Report 5632591-7 (Version None)
Quarter: 2008Q1

REPORT INFORMATION
  Report Type: 
  Country: None (occurrence: None)
  Receive Date: 20080220
  Receipt Date: 20080208
  Transmission Date: 20080703
  Serious: Yes (Other)
  Sender: FDA-Public Use
  Company Number: US-PFIZER INC-2007105674

PATIENT
  Age: 44 Year
  Sex: Male
  Weight: 98.2 kg

DRUGS (7)
  1. CHANTIX [Suspect]
     Indication: SMOKING CESSATION THERAPY
  2. ADVICOR [Concomitant]
  3. IBUPROFEN [Concomitant]
  4. PERCOCET [Concomitant]
  5. ASPIRIN [Concomitant]
  6. METOPROLOL TARTRATE [Concomitant]
  7. LISINOPRIL [Concomitant]

REACTIONS (1)
  - DRUG SCREEN POSITIVE [None]
